FAERS Safety Report 21555093 (Version 4)
Quarter: 2022Q4

REPORT INFORMATION
  Report Type: Spontaneous
  Country: JP (occurrence: JP)
  Receive Date: 20221104
  Receipt Date: 20221228
  Transmission Date: 20230113
  Serious: Yes (Life-Threatening, Hospitalization, Disabling, Other)
  Sender: FDA-Public Use
  Company Number: JP-AMGEN-JPNSP2022170285

PATIENT
  Age: 76 Year
  Sex: Female
  Weight: 31 kg

DRUGS (13)
  1. EVENITY [Suspect]
     Active Substance: ROMOSOZUMAB-AQQG
     Indication: Osteoporosis
     Dosage: 210 MILLIGRAM
     Route: 058
     Dates: start: 202010, end: 202109
  2. EVENITY [Suspect]
     Active Substance: ROMOSOZUMAB-AQQG
     Dosage: 210 MILLIGRAM, QMO
     Route: 058
     Dates: start: 20220803, end: 20220803
  3. EVENITY [Suspect]
     Active Substance: ROMOSOZUMAB-AQQG
     Dosage: 210 MILLIGRAM, QMO
     Route: 058
     Dates: start: 20220907, end: 202209
  4. ELDECALCITOL [Concomitant]
     Active Substance: ELDECALCITOL
     Indication: Osteoporosis
     Dosage: 0.75 MILLIGRAM/ ONCE DAILY AFTER DINNER
     Dates: start: 20201014
  5. ELDECALCITOL [Concomitant]
     Active Substance: ELDECALCITOL
     Dosage: UNK
     Dates: start: 20220216, end: 20220908
  6. NORSPAN [Concomitant]
     Active Substance: BUPRENORPHINE
     Indication: Osteoporosis
     Dosage: 5 MILLIGRAM (KEEP ATTACHING ONE SHEET FOR ONE WEEK AND CHANGE TO THE ANOTHER SHEET EVERY ONE WEEK)
     Dates: start: 20210609
  7. CARVEDILOL [Concomitant]
     Active Substance: CARVEDILOL
     Indication: Hypertension
     Dosage: 0.5 DOSAGE FORM, QD
     Dates: start: 2005
  8. LANSOPRAZOLE [Concomitant]
     Active Substance: LANSOPRAZOLE
     Indication: Gastritis
     Dosage: 15 MILLIGRAM, QD
     Dates: start: 2013
  9. MAGNESIUM OXIDE [Concomitant]
     Active Substance: MAGNESIUM OXIDE
     Indication: Constipation
     Dosage: 250 MILLIGRAM, BID
     Dates: start: 20220708
  10. AMLODIPINE BESYLATE [Concomitant]
     Active Substance: AMLODIPINE BESYLATE
     Indication: Hypertension
     Dosage: 5 MILLIGRAM, BID
     Dates: start: 2008
  11. ASPIRIN [Concomitant]
     Active Substance: ASPIRIN
     Dosage: UNK
  12. TENELIGLIPTIN [Concomitant]
     Active Substance: TENELIGLIPTIN
     Dosage: UNK
  13. VONOPRAZAN FUMARATE [Concomitant]
     Active Substance: VONOPRAZAN FUMARATE
     Dosage: UNK

REACTIONS (4)
  - Cerebellar haemorrhage [Recovered/Resolved with Sequelae]
  - Brain herniation [Recovered/Resolved with Sequelae]
  - Supraventricular extrasystoles [Unknown]
  - Bone density decreased [Unknown]

NARRATIVE: CASE EVENT DATE: 20220803
